FAERS Safety Report 7833451-3 (Version None)
Quarter: 2011Q4

REPORT INFORMATION
  Report Type: 
  Country: None (occurrence: None)
  Receive Date: 20111024
  Receipt Date: 20100915
  Transmission Date: 20120403
  Serious: No
  Sender: FDA-Public Use
  Company Number: US-BAYER-201033861NA

PATIENT
  Age: 44 Year
  Sex: Female

DRUGS (2)
  1. CIPROFLOXACIN [Suspect]
     Indication: URINARY TRACT INFECTION
     Dosage: UNK
     Route: 048
     Dates: start: 20090101
  2. CIPROFLOXACIN [Suspect]
     Dosage: UNK
     Dates: start: 20100101

REACTIONS (2)
  - EXOSTOSIS [None]
  - TENDONITIS [None]
